FAERS Safety Report 14935181 (Version 1)
Quarter: 2018Q2

REPORT INFORMATION
  Report Type: Report from Study
  Country: US (occurrence: US)
  Receive Date: 20180524
  Receipt Date: 20180524
  Transmission Date: 20180711
  Serious: Yes (Hospitalization, Other)
  Sender: FDA-Public Use
  Company Number: US-BAYER-2018-094157

PATIENT
  Age: 55 Year
  Sex: Female

DRUGS (3)
  1. BETASERON [Suspect]
     Active Substance: INTERFERON BETA-1B
     Indication: MULTIPLE SCLEROSIS
     Dosage: UNK
  2. BETACONNECT [Suspect]
     Active Substance: DEVICE
  3. BETASERON [Suspect]
     Active Substance: INTERFERON BETA-1B
     Indication: MULTIPLE SCLEROSIS
     Dosage: 0.25 MG, QOD
     Route: 058
     Dates: start: 20180421

REACTIONS (10)
  - Migraine [None]
  - Confusional state [None]
  - Hospitalisation [Not Recovered/Not Resolved]
  - Inappropriate schedule of drug administration [None]
  - Knee arthroplasty [None]
  - Device malfunction [None]
  - Decreased appetite [None]
  - Weight decreased [None]
  - Knee arthroplasty [None]
  - Laziness [None]

NARRATIVE: CASE EVENT DATE: 20180228
